FAERS Safety Report 4808339-2 (Version None)
Quarter: 2005Q4

REPORT INFORMATION
  Report Type: 
  Country: None (occurrence: None)
  Receive Date: 20051021
  Receipt Date: 20020701
  Transmission Date: 20060501
  Serious: No
  Sender: FDA-Public Use
  Company Number: EWC020731625

PATIENT
  Age: 36 Year
  Sex: Male

DRUGS (3)
  1. OLANZAPINE [Suspect]
     Indication: SCHIZOPHRENIA
     Dosage: 15 MG/DAY
     Route: 048
     Dates: start: 20020224
  2. EFFEXOR [Concomitant]
  3. LORAZEPAM [Concomitant]

REACTIONS (2)
  - LEUKOPENIA [None]
  - NEUTROPENIA [None]
